FAERS Safety Report 9924746 (Version 2)
Quarter: 2014Q1

REPORT INFORMATION
  Report Type: Spontaneous
  Country: US (occurrence: US)
  Receive Date: 20140226
  Receipt Date: 20140310
  Transmission Date: 20141002
  Serious: Yes (Other)
  Sender: FDA-Public Use
  Company Number: US-BAYER-2014-025902

PATIENT
  Age: 65 Year
  Sex: Female
  Weight: 66 kg

DRUGS (4)
  1. ALEVE CAPLET [Suspect]
     Indication: PROCEDURAL PAIN
     Dosage: 2 DF, QD
     Route: 048
     Dates: start: 20140201, end: 20140217
  2. ALEVE CAPLET [Suspect]
     Indication: PROCEDURAL PAIN
     Dosage: 2 DF, QD
     Route: 048
     Dates: start: 20140201, end: 20140217
  3. NORCO [Concomitant]
     Indication: PROCEDURAL PAIN
     Dosage: UNK DF, UNK
  4. SUCRALFATE [Concomitant]

REACTIONS (5)
  - Gastric ulcer [None]
  - Headache [Recovered/Resolved]
  - Pain [Recovered/Resolved]
  - Nausea [Recovered/Resolved]
  - Off label use [None]
